FAERS Safety Report 24143552 (Version 1)
Quarter: 2024Q3

REPORT INFORMATION
  Report Type: Spontaneous
  Country: DK (occurrence: DK)
  Receive Date: 20240727
  Receipt Date: 20240727
  Transmission Date: 20241016
  Serious: Yes (Disabling)
  Sender: ROCHE
  Company Number: None

PATIENT
  Age: 41 Year
  Sex: Male

DRUGS (1)
  1. OCREVUS [Suspect]
     Active Substance: OCRELIZUMAB
     Indication: Multiple sclerosis
     Dosage: THE LATEST DOSE WAS RECEIVED ON 08AUG2022.
     Route: 042
     Dates: start: 202002

REACTIONS (3)
  - Diplopia [Recovering/Resolving]
  - Fatigue [Recovering/Resolving]
  - Neuroborreliosis [Recovered/Resolved with Sequelae]

NARRATIVE: CASE EVENT DATE: 20220601
